FAERS Safety Report 5648584-X (Version None)
Quarter: 2008Q1

REPORT INFORMATION
  Report Type: 
  Country: None (occurrence: None)
  Receive Date: 20080304
  Receipt Date: 20080221
  Transmission Date: 20080703
  Serious: Yes (Hospitalization)
  Sender: FDA-Public Use
  Company Number: US-AMGEN-STX266578

PATIENT
  Sex: Female

DRUGS (2)
  1. ENBREL [Suspect]
     Indication: PSORIATIC ARTHROPATHY
     Route: 058
     Dates: start: 20030601
  2. ENBREL [Suspect]
     Indication: PSORIASIS

REACTIONS (9)
  - AORTIC STENOSIS [None]
  - ARTHRALGIA [None]
  - FATIGUE [None]
  - GRAFT HAEMORRHAGE [None]
  - GRAFT INFECTION [None]
  - HERPES ZOSTER [None]
  - JOINT STIFFNESS [None]
  - PSORIASIS [None]
  - PYREXIA [None]
